FAERS Safety Report 5801079-2 (Version None)
Quarter: 2008Q3

REPORT INFORMATION
  Report Type: 
  Country: None (occurrence: None)
  Receive Date: 20080705
  Receipt Date: 20080627
  Transmission Date: 20090109
  Serious: Yes (Hospitalization)
  Sender: FDA-Public Use
  Company Number: PHHO2008BE08077

PATIENT
  Sex: Male

DRUGS (2)
  1. ZOLEDRONIC ACID [Suspect]
     Indication: METASTATIC RENAL CELL CARCINOMA
     Dosage: UNK
     Route: 042
     Dates: start: 20050920, end: 20060502
  2. SUNITINIB MALATE [Concomitant]

REACTIONS (1)
  - OSTEONECROSIS [None]
